FAERS Safety Report 9136373 (Version 1)
Quarter: 2013Q1

REPORT INFORMATION
  Report Type: Spontaneous
  Country: US (occurrence: US)
  Receive Date: 20130219
  Receipt Date: 20130219
  Transmission Date: 20140127
  Serious: Yes (Hospitalization)
  Sender: FDA-Public Use
  Company Number: US-BRISTOL-MYERS SQUIBB COMPANY-16526725

PATIENT
  Age: 58 Year
  Sex: Female

DRUGS (5)
  1. ORENCIA [Suspect]
     Indication: RHEUMATOID ARTHRITIS
     Dosage: NO OF INFUSIONS: 8
     Route: 042
     Dates: start: 20110519, end: 20111221
  2. METHOTREXATE [Suspect]
     Dates: end: 20120312
  3. REMICADE [Suspect]
     Dosage: RECEIVED FOR 12 YEARS?RESTARTED ON 20JAN12 ?DISCONTINUED ON 12MAR12
     Dates: end: 20120312
  4. CYMBALTA [Concomitant]
  5. VICODIN [Concomitant]

REACTIONS (1)
  - Hodgkin^s disease [Unknown]
